FAERS Safety Report 5093247-5 (Version None)
Quarter: 2006Q3

REPORT INFORMATION
  Report Type: 
  Country: None (occurrence: None)
  Receive Date: 20060830
  Receipt Date: 20060825
  Transmission Date: 20061208
  Serious: Yes (Disabling)
  Sender: FDA-Public Use
  Company Number: US-BOEHRINGER INGELHEIM PHARMACEUTICALS, INC.-2006-BP-09926BP

PATIENT
  Sex: Male

DRUGS (3)
  1. FLOMAX [Suspect]
     Indication: BENIGN PROSTATIC HYPERPLASIA
     Route: 048
     Dates: start: 20020801, end: 20060823
  2. LOPRESSOR [Concomitant]
     Indication: HYPERTENSION
  3. DIABETIC MEDICATIONS [Concomitant]
     Indication: DIABETES MELLITUS

REACTIONS (1)
  - BLINDNESS UNILATERAL [None]
